FAERS Safety Report 9915587 (Version 1)
Quarter: 2014Q1

REPORT INFORMATION
  Report Type: Spontaneous
  Country: DE (occurrence: DE)
  Receive Date: 20140221
  Receipt Date: 20140221
  Transmission Date: 20141002
  Serious: Yes (Other)
  Sender: FDA-Public Use
  Company Number: DE-DRREDDYS-GER/GER/14/0038246

PATIENT
  Age: 28 Year
  Sex: Female

DRUGS (1)
  1. CITALOPRAM [Suspect]
     Indication: PANIC DISORDER
     Route: 048
     Dates: start: 20110415, end: 20111229

REACTIONS (3)
  - Polyhydramnios [Unknown]
  - Caesarean section [Unknown]
  - Exposure during pregnancy [Unknown]
